FAERS Safety Report 9934958 (Version 2)
Quarter: 2014Q1

REPORT INFORMATION
  Report Type: Spontaneous
  Country: US (occurrence: US)
  Receive Date: 20140228
  Receipt Date: 20140228
  Transmission Date: 20141002
  Serious: No
  Sender: FDA-Public Use
  Company Number: US-ASTRAZENECA-2013SE71861

PATIENT
  Age: 70 Year
  Sex: Female

DRUGS (1)
  1. METOPROLOL SUCCINATE [Suspect]
     Indication: VENTRICULAR FIBRILLATION
     Route: 048
     Dates: start: 20130923, end: 20130924

REACTIONS (10)
  - Pyrexia [Unknown]
  - Malaise [Unknown]
  - Diarrhoea [Unknown]
  - Vomiting [Unknown]
  - Headache [Unknown]
  - Insomnia [Unknown]
  - Peripheral coldness [Unknown]
  - Palpitations [Unknown]
  - Hyperhidrosis [Unknown]
  - Bradycardia [Unknown]
